FAERS Safety Report 11078455 (Version 1)
Quarter: 2015Q2

REPORT INFORMATION
  Report Type: Spontaneous
  Country: US (occurrence: US)
  Receive Date: 20150430
  Receipt Date: 20150430
  Transmission Date: 20150821
  Serious: Yes (Other)
  Sender: FDA-Public Use
  Company Number: US-MYLANLABS-2015M1014419

PATIENT

DRUGS (4)
  1. LITHIUM. [Suspect]
     Active Substance: LITHIUM
     Route: 065
  2. QUETIAPINE [Concomitant]
     Active Substance: QUETIAPINE
     Route: 065
  3. VALPROATE [Concomitant]
     Active Substance: VALPROATE SODIUM
     Dosage: 1500MG NIGHTLY
     Route: 065
  4. LACTULOSE. [Interacting]
     Active Substance: LACTULOSE
     Indication: CONSTIPATION
     Route: 065

REACTIONS (2)
  - Drug interaction [Recovering/Resolving]
  - Toxicity to various agents [Recovering/Resolving]
